FAERS Safety Report 18500748 (Version 1)
Quarter: 2020Q4

REPORT INFORMATION
  Report Type: Spontaneous
  Country: US (occurrence: US)
  Receive Date: 20201113
  Receipt Date: 20201113
  Transmission Date: 20210114
  Serious: Yes (Other)
  Sender: FDA-Public Use
  Company Number: US-PFIZER INC-2020443522

PATIENT
  Age: 59 Year
  Sex: Male
  Weight: 120.2 kg

DRUGS (3)
  1. NAVANE [Suspect]
     Active Substance: THIOTHIXENE
     Indication: AFFECTIVE DISORDER
  2. LITHIUM. [Concomitant]
     Active Substance: LITHIUM
     Dosage: UNK
  3. NAVANE [Suspect]
     Active Substance: THIOTHIXENE
     Indication: SCHIZOPHRENIA
     Dosage: 5 MG, 2X/DAY
     Route: 048
     Dates: end: 202002

REACTIONS (2)
  - Anger [Unknown]
  - Hallucination [Not Recovered/Not Resolved]
